FAERS Safety Report 10232597 (Version 1)
Quarter: 2014Q2

REPORT INFORMATION
  Report Type: Spontaneous
  Country: US (occurrence: US)
  Receive Date: 20140612
  Receipt Date: 20140612
  Transmission Date: 20141212
  Serious: Yes (Hospitalization)
  Sender: FDA-Public Use
  Company Number: US-ROCHE-1416722

PATIENT
  Age: 73 Year
  Sex: Male

DRUGS (2)
  1. ERIVEDGE [Suspect]
     Indication: BASAL CELL CARCINOMA
     Dosage: STOPPED LATE MAY OR EARLY JUNE
     Route: 065
     Dates: start: 20140509, end: 2014
  2. ERIVEDGE [Suspect]
     Indication: SQUAMOUS CELL CARCINOMA

REACTIONS (2)
  - Apallic syndrome [Not Recovered/Not Resolved]
  - Disease progression [Not Recovered/Not Resolved]
